FAERS Safety Report 23633198 (Version 1)
Quarter: 2024Q1

REPORT INFORMATION
  Report Type: Spontaneous
  Country: DE (occurrence: DE)
  Receive Date: 20240314
  Receipt Date: 20240314
  Transmission Date: 20240409
  Serious: Yes (Other)
  Sender: FDA-Public Use
  Company Number: DE-MEDAC-2024000455

PATIENT
  Age: 81 Year
  Sex: Male

DRUGS (2)
  1. ANAGRELIDE [Interacting]
     Active Substance: ANAGRELIDE
     Indication: Product used for unknown indication
     Dosage: 0.5 MILLIGRAM, Q12H
     Route: 065
  2. HYDROXYUREA [Interacting]
     Active Substance: HYDROXYUREA
     Indication: Thrombocytosis
     Dosage: UNK
     Route: 048
     Dates: start: 2018

REACTIONS (2)
  - Platelet count increased [Not Recovered/Not Resolved]
  - Drug interaction [Not Recovered/Not Resolved]

NARRATIVE: CASE EVENT DATE: 20240101
